FAERS Safety Report 5626170-5 (Version None)
Quarter: 2008Q1

REPORT INFORMATION
  Report Type: 
  Country: None (occurrence: None)
  Receive Date: 20080211
  Receipt Date: 20080129
  Transmission Date: 20080703
  Serious: Yes (Other)
  Sender: FDA-Public Use
  Company Number: 2008US000407

PATIENT
  Age: 53 Year
  Sex: Male

DRUGS (1)
  1. PROGRAF [Suspect]
     Indication: DRUG USE FOR UNKNOWN INDICATION

REACTIONS (3)
  - CONVULSION [None]
  - NERVOUS SYSTEM DISORDER [None]
  - PSYCHOMOTOR HYPERACTIVITY [None]
